FAERS Safety Report 17218488 (Version 1)
Quarter: 2020Q1

REPORT INFORMATION
  Report Type: Spontaneous
  Country: US (occurrence: US)
  Receive Date: 20191230
  Receipt Date: 20191230
  Transmission Date: 20200409
  Serious: Yes (Life-Threatening, Hospitalization, Other)
  Sender: FDA-Public Use
  Company Number: None

PATIENT
  Age: 35 Year
  Sex: Female
  Weight: 121.5 kg

DRUGS (8)
  1. HYDROMORPHONE [Concomitant]
     Active Substance: HYDROMORPHONE
  2. ELIQUIS [Suspect]
     Active Substance: APIXABAN
     Indication: ANTIPHOSPHOLIPID SYNDROME
     Route: 048
     Dates: start: 20190601, end: 20191113
  3. FOLIC ACID. [Concomitant]
     Active Substance: FOLIC ACID
  4. B6 [Concomitant]
     Active Substance: PYRIDOXINE HYDROCHLORIDE
  5. KEPPRA [Concomitant]
     Active Substance: LEVETIRACETAM
  6. WARFARIN [Concomitant]
     Active Substance: WARFARIN
  7. TORIRAMATE [Concomitant]
  8. VITAMIN B12 [Concomitant]
     Active Substance: CYANOCOBALAMIN

REACTIONS (8)
  - Seizure [None]
  - Hypoaesthesia [None]
  - Amnesia [None]
  - Product substitution issue [None]
  - Road traffic accident [None]
  - Headache [None]
  - Loss of consciousness [None]
  - Cerebrovascular accident [None]

NARRATIVE: CASE EVENT DATE: 20191115
